FAERS Safety Report 5900859-2 (Version None)
Quarter: 2008Q3

REPORT INFORMATION
  Report Type: 
  Country: None (occurrence: None)
  Receive Date: 20080925
  Receipt Date: 20080910
  Transmission Date: 20090109
  Serious: Yes (Life-Threatening)
  Sender: FDA-Public Use
  Company Number: 2008S1016793

PATIENT
  Age: 66 Year
  Sex: Male

DRUGS (3)
  1. TEMERIT (NEBIVOLOL) [Suspect]
     Indication: DRUG DISPENSING ERROR
     Dosage: ORAL
     Route: 048
     Dates: start: 20080809, end: 20080809
  2. PERINDOPRIL ERBUMINE [Suspect]
     Indication: DRUG DISPENSING ERROR
     Dosage: ORAL
     Route: 048
     Dates: start: 20080809, end: 20080809
  3. NOVONORM (REPAGLINIDE) [Suspect]
     Indication: DRUG DISPENSING ERROR
     Dosage: ORAL
     Route: 048
     Dates: start: 20080809, end: 20080809

REACTIONS (6)
  - CEREBRAL HYPOPERFUSION [None]
  - DRUG DISPENSING ERROR [None]
  - HYPOTENSION [None]
  - MEDICATION ERROR [None]
  - MYOCARDIAL ISCHAEMIA [None]
  - WRONG DRUG ADMINISTERED [None]
